FAERS Safety Report 4798954-7 (Version None)
Quarter: 2005Q4

REPORT INFORMATION
  Report Type: 
  Country: None (occurrence: None)
  Receive Date: 20051014
  Receipt Date: 20050921
  Transmission Date: 20060501
  Serious: Yes (Disabling)
  Sender: FDA-Public Use
  Company Number: SE-ABBOTT-05P-150-0311851-00

PATIENT
  Age: 47 Year
  Sex: Female

DRUGS (1)
  1. HUMIRA [Suspect]
     Indication: DRUG USE FOR UNKNOWN INDICATION
     Route: 058
     Dates: start: 20030605, end: 20030806

REACTIONS (5)
  - APTYALISM [None]
  - DRY MOUTH [None]
  - GASTROINTESTINAL DISORDER [None]
  - OPTIC NEURITIS [None]
  - SALIVA ALTERED [None]
